FAERS Safety Report 4899354-1 (Version None)
Quarter: 2006Q1

REPORT INFORMATION
  Report Type: 
  Country: None (occurrence: None)
  Receive Date: 20060131
  Receipt Date: 20060118
  Transmission Date: 20060701
  Serious: Yes (Other)
  Sender: FDA-Public Use
  Company Number: 2006011492

PATIENT
  Sex: Female

DRUGS (3)
  1. MISOPROSTOL [Suspect]
     Indication: ABORTION INDUCED
     Dosage: 800 MG (800 MG, SINGLE DOSE), VAGINAL
     Route: 067
     Dates: start: 20060107, end: 20060107
  2. MIFEPRISTONE (MIFEPRISTONE) [Concomitant]
  3. CO-DYDRAMOL (DIHIDROCODEINE BITARTRATE, PARACETAMOL) [Concomitant]

REACTIONS (5)
  - ANAPHYLACTIC REACTION [None]
  - DRUG EXPOSURE DURING PREGNANCY [None]
  - DYSPNOEA [None]
  - EYE SWELLING [None]
  - SWELLING FACE [None]
